FAERS Safety Report 9269846 (Version 3)
Quarter: 2013Q4

REPORT INFORMATION
  Report Type: Spontaneous
  Country: US (occurrence: US)
  Receive Date: 20130503
  Receipt Date: 20131004
  Transmission Date: 20140711
  Serious: Yes (Hospitalization, Other)
  Sender: FDA-Public Use
  Company Number: US-B.I. PHARMACEUTICALS,INC./RIDGEFIELD-2013-BI-12212BP

PATIENT
  Age: 62 Year
  Sex: Male
  Weight: 81.65 kg

DRUGS (10)
  1. PRADAXA [Suspect]
     Indication: ANTICOAGULANT THERAPY
     Dosage: 150 MG
     Dates: start: 20101201, end: 20110211
  2. PRADAXA [Suspect]
     Indication: ATRIAL FIBRILLATION
  3. LISINOPRIL [Concomitant]
     Dosage: 40 MG
     Route: 048
     Dates: start: 2000, end: 20110211
  4. LOPRESSOR [Concomitant]
     Dosage: 25 MG
     Route: 048
     Dates: start: 2010
  5. LASIX [Concomitant]
     Dosage: 20 MG
     Route: 048
     Dates: start: 2010
  6. PRAVASTATIN [Concomitant]
     Dosage: 40 MG
     Route: 048
     Dates: start: 2000
  7. DILTIAZEM HYDROCHLORIDE XR [Concomitant]
     Dosage: 240 MG
     Dates: start: 20101215, end: 20110302
  8. KCL [Concomitant]
     Dosage: 10 MEQ
     Route: 048
  9. AMIODARONE [Concomitant]
     Dosage: 200 MG
     Route: 048
  10. ASA [Concomitant]
     Dosage: 81 MG
     Route: 048

REACTIONS (8)
  - Coagulopathy [Unknown]
  - Renal injury [Unknown]
  - Hepatic enzyme increased [Unknown]
  - Pericardial effusion [Unknown]
  - Post procedural haemorrhage [Unknown]
  - Cardiac arrest [Unknown]
  - Cardiac tamponade [Unknown]
  - Ecchymosis [Unknown]
